FAERS Safety Report 17751931 (Version 5)
Quarter: 2021Q1

REPORT INFORMATION
  Report Type: Spontaneous
  Country: US (occurrence: US)
  Receive Date: 20200506
  Receipt Date: 20210108
  Transmission Date: 20210419
  Serious: Yes (Hospitalization)
  Sender: FDA-Public Use
  Company Number: US-CLOVIS ONCOLOGY-CLO-2020-000822

PATIENT
  Sex: Female

DRUGS (3)
  1. RUBRACA [Suspect]
     Active Substance: RUCAPARIB CAMSYLATE
     Dosage: 500 MG, BID
  2. RUBRACA [Suspect]
     Active Substance: RUCAPARIB CAMSYLATE
     Indication: OVARIAN CANCER
     Dosage: 500 MG, BID
     Dates: start: 202004, end: 202004
  3. RUBRACA [Suspect]
     Active Substance: RUCAPARIB CAMSYLATE
     Dosage: UNK

REACTIONS (18)
  - Blood magnesium decreased [Unknown]
  - Stress [Unknown]
  - Mouth haemorrhage [Recovered/Resolved]
  - Red blood cell count decreased [Unknown]
  - Decreased appetite [Not Recovered/Not Resolved]
  - Dyspnoea [Unknown]
  - Blood potassium decreased [Unknown]
  - Endodontic procedure [Unknown]
  - Adverse event [Unknown]
  - Weight decreased [Not Recovered/Not Resolved]
  - Anaemia [Unknown]
  - Dyspnoea [Recovered/Resolved]
  - Taste disorder [Unknown]
  - Chest pain [Unknown]
  - Dehydration [Unknown]
  - Dizziness [Not Recovered/Not Resolved]
  - Asthenia [Unknown]
  - White blood cell count decreased [Unknown]

NARRATIVE: CASE EVENT DATE: 2020
